FAERS Safety Report 7487613-8 (Version None)
Quarter: 2011Q2

REPORT INFORMATION
  Report Type: 
  Country: None (occurrence: None)
  Receive Date: 20110518
  Receipt Date: 20110428
  Transmission Date: 20111010
  Serious: No
  Sender: FDA-Public Use
  Company Number: US-B.I. PHARMACEUTICALS,INC./RIDGEFIELD-2011-BP-03465BP

PATIENT
  Sex: Male

DRUGS (10)
  1. METFORMIN HCL [Concomitant]
     Indication: DIABETES MELLITUS
     Dosage: 1000 MG
     Route: 048
  2. TOPROL-XL [Concomitant]
     Indication: ATRIAL FIBRILLATION
     Dosage: 100 MG
     Route: 048
  3. GLYBURIDE [Concomitant]
     Indication: DIABETES MELLITUS
     Dosage: 5 MG
     Route: 048
  4. VITAMINS [Concomitant]
     Route: 048
  5. COLCHICINE [Concomitant]
     Indication: GOUT
     Dosage: 1.2 MG
     Route: 048
  6. PREDNISOLONE EYE DROPS [Concomitant]
     Indication: MACULAR DEGENERATION
  7. PREVACID [Concomitant]
     Indication: GASTROOESOPHAGEAL REFLUX DISEASE
  8. PRADAXA [Suspect]
     Indication: ATRIAL FIBRILLATION
     Dosage: 300 MG
     Route: 048
     Dates: start: 20110123
  9. PREVACID [Concomitant]
     Indication: HELICOBACTER INFECTION
     Dosage: 30 MG
     Route: 048
  10. ZOCOR [Concomitant]
     Dosage: 10 MG

REACTIONS (7)
  - ABDOMINAL DISCOMFORT [None]
  - NAUSEA [None]
  - GASTROOESOPHAGEAL REFLUX DISEASE [None]
  - FLATULENCE [None]
  - DYSPEPSIA [None]
  - ERUCTATION [None]
  - FATIGUE [None]
